FAERS Safety Report 7905237-2 (Version None)
Quarter: 2011Q4

REPORT INFORMATION
  Report Type: 
  Country: None (occurrence: None)
  Receive Date: 20111109
  Receipt Date: 20111031
  Transmission Date: 20120403
  Serious: Yes (Hospitalization, Other)
  Sender: FDA-Public Use
  Company Number: JP-ASTRAZENECA-2010SE35381

PATIENT
  Age: 79 Year
  Sex: Male

DRUGS (6)
  1. IRESSA [Suspect]
     Indication: LUNG NEOPLASM MALIGNANT
     Route: 048
     Dates: start: 20100616, end: 20100726
  2. CONIEL [Concomitant]
     Route: 048
  3. BISOLVON [Concomitant]
     Route: 048
     Dates: end: 20100728
  4. PANCREAZE [Concomitant]
     Route: 048
     Dates: end: 20100728
  5. PRAVASTATIN SODIUM [Concomitant]
     Route: 048
     Dates: end: 20100728
  6. TRICHLORMETHIAZIDE [Concomitant]
     Route: 048
     Dates: end: 20100728

REACTIONS (1)
  - LIVER DISORDER [None]
